FAERS Safety Report 7112484-9 (Version None)
Quarter: 2010Q4

REPORT INFORMATION
  Report Type: 
  Country: None (occurrence: None)
  Receive Date: 20101119
  Receipt Date: 20101104
  Transmission Date: 20110411
  Serious: Yes (Hospitalization, Other)
  Sender: FDA-Public Use
  Company Number: US-BAYER-201031424NA

PATIENT
  Age: 36 Year
  Sex: Female
  Weight: 45 kg

DRUGS (6)
  1. YAZ [Suspect]
     Indication: PREMENSTRUAL SYNDROME
     Route: 048
     Dates: start: 20060801, end: 20080801
  2. IBUPROFEN [Concomitant]
     Indication: ANALGESIC THERAPY
     Dosage: 8 PILLS DAILY
     Route: 048
     Dates: start: 20080701
  3. MULTI-VITAMIN [Concomitant]
     Route: 048
  4. PERCOCET [Concomitant]
     Route: 048
  5. BENTYL [Concomitant]
     Route: 048
  6. NAPROXEN [Concomitant]

REACTIONS (10)
  - ABDOMINAL PAIN [None]
  - CHEST PAIN [None]
  - DYSPNOEA [None]
  - FATIGUE [None]
  - LUNG INFILTRATION [None]
  - MYOCARDIAL INFARCTION [None]
  - PLEURAL EFFUSION [None]
  - PULMONARY EMBOLISM [None]
  - PULMONARY HYPERTENSION [None]
  - TOTAL LUNG CAPACITY DECREASED [None]
